FAERS Safety Report 9995878 (Version 1)
Quarter: 2014Q1

REPORT INFORMATION
  Report Type: Spontaneous
  Country: US (occurrence: None)
  Receive Date: 20140221
  Receipt Date: 20140221
  Transmission Date: 20141002
  Serious: Yes (Other)
  Sender: FDA-Public Use
  Company Number: 1000052707

PATIENT
  Age: 75 Year
  Sex: Female

DRUGS (9)
  1. TUDORZA PRESSAIR [Suspect]
     Indication: CHRONIC OBSTRUCTIVE PULMONARY DISEASE
     Dosage: 800 MCG (400 MCG, 2 IN 1 D), RESPIRATORY (INHALATION)
     Route: 055
     Dates: start: 201312, end: 20131228
  2. HYDROCHLOROTHIAZIDE (HYDROCHLOROTHIAZIDE) (HYDROCHLOROTHIAZIDE) [Concomitant]
  3. LOSARTAN POTASSIUM (LOSARTAN POTASSIUM) (LOSARTAN POTASSIUM) [Concomitant]
  4. NEXIUM (ESOMEPRAZOLE) (ESOMEPRAZOLE) [Concomitant]
  5. ATORVASTATIN (ATORVASTATIN) (ATORVASTATIN) [Concomitant]
  6. DICLOFENAC (DICLOFENAC) (DICLOFENAC) [Concomitant]
  7. PROBIOTICS (PROBIOTICS) (PROBIOTICS) [Concomitant]
  8. FISH OIL (FISH OIL) (FISH OIL) [Concomitant]
  9. CITRACAL (CALCIUM CITRATE) (CALCIUM CITRATE) [Concomitant]

REACTIONS (1)
  - Headache [None]
